FAERS Safety Report 12351078 (Version 1)
Quarter: 2016Q2

REPORT INFORMATION
  Report Type: Report from Study
  Country: US (occurrence: US)
  Receive Date: 20160510
  Receipt Date: 20160510
  Transmission Date: 20160815
  Serious: Yes (Hospitalization, Other)
  Sender: FDA-Public Use
  Company Number: US-BAYER-2016-044780

PATIENT
  Age: 24 Year
  Sex: Male
  Weight: 69.84 kg

DRUGS (5)
  1. XARELTO [Concomitant]
     Active Substance: RIVAROXABAN
  2. ADEMPAS [Suspect]
     Active Substance: RIOCIGUAT
     Indication: PULMONARY HYPERTENSION
     Dosage: 1.5 MG, TID
     Route: 048
     Dates: end: 20160324
  3. ADEMPAS [Suspect]
     Active Substance: RIOCIGUAT
     Indication: PULMONARY HYPERTENSION
     Dosage: 1.5 MG, TID, LAST SHIPPED 10-MAR-2016
     Route: 048
  4. ADEMPAS [Suspect]
     Active Substance: RIOCIGUAT
     Indication: PULMONARY HYPERTENSION
     Dosage: UNK
     Dates: start: 20150813
  5. ADEMPAS [Suspect]
     Active Substance: RIOCIGUAT
     Indication: PULMONARY HYPERTENSION
     Dosage: 2 MG, TID
     Route: 048

REACTIONS (24)
  - Cardiac discomfort [None]
  - Hypoaesthesia [Unknown]
  - Blood pressure diastolic increased [Unknown]
  - Blood pressure fluctuation [None]
  - Chest pain [Unknown]
  - Depression [None]
  - Blood pressure decreased [None]
  - Palpitations [None]
  - Dizziness [None]
  - Heart rate decreased [None]
  - Nasopharyngitis [Unknown]
  - Malaise [None]
  - Bradycardia [None]
  - Tunnel vision [None]
  - Cardiac disorder [Unknown]
  - Dizziness [Unknown]
  - Hypoglycaemia [None]
  - Emergency care [None]
  - Tinnitus [Unknown]
  - Hypoaesthesia [None]
  - Tinnitus [None]
  - Dizziness [None]
  - Blood pressure increased [None]
  - Drug intolerance [None]

NARRATIVE: CASE EVENT DATE: 201603
